FAERS Safety Report 15540922 (Version 1)
Quarter: 2018Q4

REPORT INFORMATION
  Report Type: Spontaneous
  Country: GB (occurrence: GB)
  Receive Date: 20181023
  Receipt Date: 20181023
  Transmission Date: 20190205
  Serious: Yes (Disabling, Other)
  Sender: FDA-Public Use
  Company Number: GB-AUROBINDO-AUR-APL-2018-051452

PATIENT
  Age: 62 Year
  Sex: Male
  Weight: 76.2 kg

DRUGS (1)
  1. AMLODIPINE [Suspect]
     Active Substance: AMLODIPINE BESYLATE
     Indication: HYPERTENSION
     Dosage: 10 MILLIGRAM
     Route: 048
     Dates: start: 20180124, end: 20180205

REACTIONS (23)
  - Amnesia [Not Recovered/Not Resolved]
  - Breath sounds abnormal [Unknown]
  - Hyperhidrosis [Not Recovered/Not Resolved]
  - Asthenia [Unknown]
  - Disorientation [Unknown]
  - Parkinson^s disease [Not Recovered/Not Resolved]
  - Neck pain [Unknown]
  - Feeling of body temperature change [Unknown]
  - Paralysis [Not Recovered/Not Resolved]
  - Paraesthesia [Unknown]
  - Dyspnoea [Unknown]
  - Constipation [Unknown]
  - Dizziness [Unknown]
  - Hypoaesthesia [Unknown]
  - Suicidal ideation [Unknown]
  - Dysarthria [Unknown]
  - Pain [Unknown]
  - Erectile dysfunction [Unknown]
  - Dysphagia [Unknown]
  - Gait disturbance [Not Recovered/Not Resolved]
  - Lethargy [Unknown]
  - Tremor [Not Recovered/Not Resolved]
  - Nerve injury [Unknown]

NARRATIVE: CASE EVENT DATE: 201801
